FAERS Safety Report 9629483 (Version 2)
Quarter: 2013Q4

REPORT INFORMATION
  Report Type: Spontaneous
  Country: BR (occurrence: BR)
  Receive Date: 20131017
  Receipt Date: 20131028
  Transmission Date: 20140711
  Serious: Yes (Other)
  Sender: FDA-Public Use
  Company Number: BR-PFIZER INC-2013297201

PATIENT
  Sex: Female

DRUGS (2)
  1. CELEBRA [Suspect]
     Indication: PAIN
     Dosage: UNK
     Route: 048
     Dates: end: 20131012
  2. CELEBRA [Suspect]
     Indication: UPPER LIMB FRACTURE

REACTIONS (3)
  - Dizziness [Not Recovered/Not Resolved]
  - Dysstasia [Not Recovered/Not Resolved]
  - Abdominal discomfort [Not Recovered/Not Resolved]
